FAERS Safety Report 25239180 (Version 2)
Quarter: 2025Q2

REPORT INFORMATION
  Report Type: Spontaneous
  Country: ES (occurrence: ES)
  Receive Date: 20250425
  Receipt Date: 20250509
  Transmission Date: 20250716
  Serious: Yes (Other)
  Sender: AUROBINDO
  Company Number: ES-AEMPS-1660856

PATIENT
  Age: 40 Year
  Sex: Female

DRUGS (9)
  1. CANDESARTAN [Suspect]
     Active Substance: CANDESARTAN
     Indication: Migraine
     Dosage: 16 MILLIGRAM, ONCE A DAY
     Route: 048
     Dates: start: 20220615, end: 20230109
  2. CLOPIDOGREL [Suspect]
     Active Substance: CLOPIDOGREL BISULFATE
     Indication: Antiphospholipid syndrome
     Dosage: 75 MILLIGRAM, ONCE A DAY
     Route: 048
     Dates: start: 20190715, end: 20230310
  3. PAROXETINE [Suspect]
     Active Substance: PAROXETINE
     Indication: Migraine
     Dosage: 20 MILLIGRAM, ONCE A DAY
     Route: 048
     Dates: start: 20200315, end: 20230313
  4. AJOVY [Suspect]
     Active Substance: FREMANEZUMAB-VFRM
     Indication: Migraine
     Route: 058
     Dates: start: 20221011, end: 20230109
  5. AMITRIPTYLINE HYDROCHLORIDE [Suspect]
     Active Substance: AMITRIPTYLINE HYDROCHLORIDE
     Indication: Migraine
     Dosage: 10 MILLIGRAM, ONCE A DAY
     Route: 048
     Dates: start: 20200115, end: 20230313
  6. ALMOTRIPTAN [Suspect]
     Active Substance: ALMOTRIPTAN
     Indication: Migraine
     Route: 048
     Dates: start: 20200315, end: 20230313
  7. BOTULINUM TOXIN NOS [Suspect]
     Active Substance: BOTULINUM TOXIN NOS
     Indication: Migraine
     Route: 058
     Dates: start: 20211025, end: 20230109
  8. NIMODIPINE [Suspect]
     Active Substance: NIMODIPINE
     Indication: Headache
     Dosage: 30 MILLIGRAM, 3 TIMES A DAY
     Route: 048
     Dates: start: 20120715, end: 20230310
  9. TRAZODONE HYDROCHLORIDE [Suspect]
     Active Substance: TRAZODONE HYDROCHLORIDE
     Indication: Migraine
     Dosage: 100 MILLIGRAM, ONCE A DAY
     Route: 048
     Dates: start: 20220615, end: 20230313

REACTIONS (3)
  - Abortion missed [Recovered/Resolved]
  - Off label use [Unknown]
  - Maternal exposure during pregnancy [Unknown]

NARRATIVE: CASE EVENT DATE: 20230109
